FAERS Safety Report 6770489-1 (Version None)
Quarter: 2010Q2

REPORT INFORMATION
  Report Type: 
  Country: None (occurrence: None)
  Receive Date: 20100615
  Receipt Date: 20100610
  Transmission Date: 20101027
  Serious: Yes (Death, Hospitalization)
  Sender: FDA-Public Use
  Company Number: GB-ROCHE-708818

PATIENT
  Sex: Female
  Weight: 75 kg

DRUGS (6)
  1. CAPECITABINE [Suspect]
     Dosage: ACTUAL DOSE GIVEN: 5250 MG. DATE OF MOST RECENT ADMINISTRATION: 19 MAY 2010.
     Route: 065
     Dates: start: 20100423
  2. EPIRUBICIN [Suspect]
     Dosage: ACTUAL DOSE: 95 MG. DATE OF MOST RECENT ADMINISTRATION: 14 MAY 2010.
     Route: 065
     Dates: start: 20100423
  3. CISPLATIN [Suspect]
     Dosage: ACTUAL DOSE: 112 MG. DATE OF RECENT ADMINISTRATION : 14 MAY 2010
     Route: 065
     Dates: start: 20100423
  4. DEXAMETASONE [Concomitant]
     Route: 048
     Dates: start: 20100514, end: 20100519
  5. ONDANSETRON [Concomitant]
     Route: 048
     Dates: start: 20100514, end: 20100514
  6. RANITIDINE [Concomitant]
     Route: 048

REACTIONS (2)
  - NEUTROPENIA [None]
  - PERITONITIS [None]
